FAERS Safety Report 4753622-2 (Version None)
Quarter: 2005Q3

REPORT INFORMATION
  Report Type: 
  Country: None (occurrence: None)
  Receive Date: 20050826
  Receipt Date: 20050816
  Transmission Date: 20060218
  Serious: Yes (Hospitalization, Other)
  Sender: FDA-Public Use
  Company Number: PHBS2005BR12189

PATIENT
  Age: 32 Year
  Sex: Female
  Weight: 70 kg

DRUGS (4)
  1. GLEEVEC [Suspect]
     Indication: CHRONIC MYELOID LEUKAEMIA
     Dosage: 400 MG/DAY
     Route: 048
     Dates: start: 20020801, end: 20030101
  2. GLEEVEC [Suspect]
     Dosage: 400 MG/DAY
     Route: 048
     Dates: start: 20041001, end: 20050512
  3. GLEEVEC [Suspect]
     Dosage: 600 MG/DAY
     Route: 048
     Dates: start: 20040901, end: 20041001
  4. CHEMOTHERAPEUTICS,OTHER [Concomitant]

REACTIONS (9)
  - BLAST CRISIS IN MYELOGENOUS LEUKAEMIA [None]
  - HEADACHE [None]
  - HYPERTENSION [None]
  - MALAISE [None]
  - NAUSEA [None]
  - OSTEONECROSIS [None]
  - PAIN [None]
  - PLATELET COUNT DECREASED [None]
  - VOMITING [None]
